FAERS Safety Report 6381130-4 (Version None)
Quarter: 2009Q3

REPORT INFORMATION
  Report Type: 
  Country: None (occurrence: None)
  Receive Date: 20090929
  Receipt Date: 20090925
  Transmission Date: 20100115
  Serious: Yes (Hospitalization, Other)
  Sender: FDA-Public Use
  Company Number: DE-BRISTOL-MYERS SQUIBB COMPANY-14791289

PATIENT
  Age: 60 Year
  Sex: Male

DRUGS (8)
  1. CETUXIMAB [Suspect]
     Indication: COLORECTAL CANCER
     Dosage: CETUXIMAB 5 MG/ML.
     Route: 042
     Dates: start: 20080513, end: 20080902
  2. OXALIPLATIN [Suspect]
     Indication: COLORECTAL CANCER
     Dosage: RECENT INF ON 02SEP08
     Route: 042
     Dates: start: 20080513
  3. FLUOROURACIL [Suspect]
     Indication: COLORECTAL CANCER
     Dosage: RECENT INF ON 02SEP08
     Route: 042
     Dates: start: 20080513
  4. FOLINIC ACID [Suspect]
     Indication: COLORECTAL CANCER
     Dosage: RECENT INF ON 02SEP08
     Route: 042
     Dates: start: 20080513
  5. EMEND [Concomitant]
     Dates: start: 20080513
  6. CLEMASTINE FUMARATE [Concomitant]
     Dates: start: 20080513
  7. ONDANSETRON [Concomitant]
     Dates: start: 20080513
  8. METOCLOPRAMIDE [Concomitant]
     Dates: start: 20080513

REACTIONS (2)
  - AGRANULOCYTOSIS [None]
  - NEUROPATHY PERIPHERAL [None]
